FAERS Safety Report 6174561-9 (Version None)
Quarter: 2009Q2

REPORT INFORMATION
  Report Type: 
  Country: None (occurrence: None)
  Receive Date: 20090430
  Receipt Date: 20081002
  Transmission Date: 20091009
  Serious: No
  Sender: FDA-Public Use
  Company Number: US-ASTRAZENECA-2008UW15336

PATIENT
  Sex: Female

DRUGS (5)
  1. NEXIUM [Suspect]
     Indication: GASTROOESOPHAGEAL REFLUX DISEASE
     Route: 048
     Dates: end: 20080911
  2. NEXIUM [Suspect]
     Route: 048
     Dates: start: 20081001
  3. PLAVIX [Concomitant]
  4. EXCEDRIN [Concomitant]
  5. CARDIAC MEDICATIONS [Concomitant]

REACTIONS (1)
  - SKIN DISORDER [None]
